FAERS Safety Report 7776370-3 (Version None)
Quarter: 2011Q3

REPORT INFORMATION
  Report Type: 
  Country: None (occurrence: None)
  Receive Date: 20110916
  Receipt Date: 20110621
  Transmission Date: 20111222
  Serious: Yes (Other)
  Sender: FDA-Public Use
  Company Number: 2011028763

PATIENT
  Sex: Female
  Weight: 50.8029 kg

DRUGS (4)
  1. HIZENTRA [Suspect]
     Indication: IMMUNODEFICIENCY COMMON VARIABLE
     Dosage: SEE IMAGE
     Route: 058
     Dates: start: 20100825
  2. MAXALT (RIZATRIPTAN) [Concomitant]
  3. XANAX [Concomitant]
  4. HIZENTRA [Suspect]

REACTIONS (3)
  - CYSTITIS [None]
  - URINARY TRACT INFECTION [None]
  - BACK PAIN [None]
